FAERS Safety Report 10407042 (Version 2)
Quarter: 2014Q3

REPORT INFORMATION
  Report Type: Spontaneous
  Country: US (occurrence: US)
  Receive Date: 20140825
  Receipt Date: 20140825
  Transmission Date: 20150326
  Serious: Yes (Hospitalization)
  Sender: FDA-Public Use
  Company Number: US-GLAXOSMITHKLINE-A0693027A

PATIENT
  Sex: Female
  Weight: 107.7 kg

DRUGS (9)
  1. LYRICA [Concomitant]
     Active Substance: PREGABALIN
  2. AVANDAMET [Suspect]
     Active Substance: METFORMIN HYDROCHLORIDE\ROSIGLITAZONE MALEATE
     Indication: TYPE 2 DIABETES MELLITUS
     Route: 048
     Dates: start: 200411, end: 20070511
  3. ASPIRIN. [Concomitant]
     Active Substance: ASPIRIN
  4. DETROL [Concomitant]
     Active Substance: TOLTERODINE TARTRATE
  5. GLUCOPHAGE [Concomitant]
     Active Substance: METFORMIN HYDROCHLORIDE
     Dates: start: 2006, end: 200705
  6. VYTORIN [Concomitant]
     Active Substance: EZETIMIBE\SIMVASTATIN
  7. LISINOPRIL. [Concomitant]
     Active Substance: LISINOPRIL
  8. AVANDIA [Suspect]
     Active Substance: ROSIGLITAZONE MALEATE
     Indication: TYPE 2 DIABETES MELLITUS
     Dosage: 4MG TWICE PER DAY
     Route: 048
     Dates: end: 200704
  9. GLUCOTROL [Concomitant]
     Active Substance: GLIPIZIDE
     Dates: start: 2006, end: 20070511

REACTIONS (3)
  - Cardiac failure congestive [Not Recovered/Not Resolved]
  - Angina pectoris [Unknown]
  - Chest pain [Unknown]
